FAERS Safety Report 25106988 (Version 2)
Quarter: 2025Q1

REPORT INFORMATION
  Report Type: Spontaneous
  Country: GB (occurrence: GB)
  Receive Date: 20250321
  Receipt Date: 20250321
  Transmission Date: 20250408
  Serious: Yes (Hospitalization, Other)
  Sender: REGENERON
  Company Number: GB-REGENERON PHARMACEUTICALS, INC.-2025-041930

PATIENT
  Sex: Male

DRUGS (3)
  1. LIBTAYO [Suspect]
     Active Substance: CEMIPLIMAB-RWLC
     Indication: Squamous cell carcinoma of skin
     Dates: start: 20240202, end: 20240517
  2. LIBTAYO [Suspect]
     Active Substance: CEMIPLIMAB-RWLC
     Indication: Lymphoma
  3. DAROLUTAMIDE [Concomitant]
     Active Substance: DAROLUTAMIDE
     Indication: Prostate cancer

REACTIONS (3)
  - Myelosuppression [Unknown]
  - Hyperthyroidism [Unknown]
  - Off label use [Unknown]

NARRATIVE: CASE EVENT DATE: 20240501
